FAERS Safety Report 7479561-4 (Version None)
Quarter: 2011Q2

REPORT INFORMATION
  Report Type: 
  Country: None (occurrence: None)
  Receive Date: 20110513
  Receipt Date: 20110502
  Transmission Date: 20111010
  Serious: Yes (Hospitalization)
  Sender: FDA-Public Use
  Company Number: US-CELGENEUS-163-21880-11050439

PATIENT
  Sex: Female

DRUGS (3)
  1. DIOVAN [Concomitant]
     Route: 065
  2. REVLIMID [Suspect]
     Indication: MULTIPLE MYELOMA
     Dosage: 10 MILLIGRAM
     Route: 048
     Dates: start: 20090710, end: 20101129
  3. REVLIMID [Suspect]
     Dosage: 10 MILLIGRAM
     Route: 048
     Dates: start: 20110204

REACTIONS (4)
  - COLONIC OBSTRUCTION [None]
  - PAIN IN EXTREMITY [None]
  - VERTIGO [None]
  - PRURITUS [None]
